FAERS Safety Report 12892143 (Version 1)
Quarter: 2016Q4

REPORT INFORMATION
  Report Type: Report from Study
  Country: US (occurrence: US)
  Receive Date: 20161028
  Receipt Date: 20161028
  Transmission Date: 20170207
  Serious: No
  Sender: FDA-Public Use
  Company Number: US-AMGEN-USASL2016141001

PATIENT
  Age: 45 Year
  Sex: Female

DRUGS (2)
  1. ACTEMRA [Concomitant]
     Active Substance: TOCILIZUMAB
     Dosage: UNK
  2. ENBREL [Suspect]
     Active Substance: ETANERCEPT
     Indication: RHEUMATOID ARTHRITIS
     Dosage: 50 MG, ONCE WEEKLY
     Route: 065
     Dates: start: 2007

REACTIONS (1)
  - Unevaluable event [Unknown]
